FAERS Safety Report 8168837 (Version 4)
Quarter: 2013Q2

REPORT INFORMATION
  Report Type: Spontaneous
  Country: JP (occurrence: JP)
  Receive Date: 20111005
  Receipt Date: 20130503
  Transmission Date: 20140414
  Serious: Yes (Other)
  Sender: FDA-Public Use
  Company Number: JP-JNJFOC-20111000732

PATIENT
  Age: 84 Year
  Sex: Female
  Weight: 57 kg

DRUGS (25)
  1. TRAMCET [Suspect]
     Indication: PAIN
     Dosage: 1 PER 1 DAY
     Route: 048
     Dates: start: 20110721, end: 20110722
  2. TRAMCET [Suspect]
     Indication: PAIN
     Route: 048
     Dates: start: 20110723, end: 20110725
  3. TRAMCET [Suspect]
     Indication: PAIN
     Dosage: 1 PER 1 DAY
     Route: 048
     Dates: start: 20110726, end: 20110729
  4. TRAMCET [Suspect]
     Indication: PAIN
     Dosage: 1 PER 1 DAY
     Route: 048
     Dates: start: 20110730, end: 20110801
  5. TRAMCET [Suspect]
     Indication: PAIN
     Dosage: 1 PER 1 DAY
     Route: 048
     Dates: start: 20110802, end: 20110808
  6. TRAMCET [Suspect]
     Indication: PAIN
     Dosage: 1 PER 1 DAY
     Route: 048
     Dates: start: 20110809, end: 20110822
  7. TRAMCET [Suspect]
     Indication: PAIN
     Dosage: 1 PER 1 DAY
     Route: 048
     Dates: start: 20110823, end: 20110829
  8. MOBIC [Suspect]
     Indication: PAIN
     Dosage: 1 PER 1 DAY
     Route: 048
     Dates: start: 20100205, end: 20100323
  9. MOBIC [Suspect]
     Indication: PAIN
     Dosage: 1 PER 1 DAY
     Route: 048
     Dates: start: 20100607, end: 20100822
  10. MOBIC [Suspect]
     Indication: PAIN
     Dosage: 1 PER 1 DAY
     Route: 048
     Dates: start: 20100829, end: 20101010
  11. MOBIC [Suspect]
     Indication: PAIN
     Dosage: 1 PER 1 DAY
     Route: 048
     Dates: start: 20101012, end: 20101025
  12. MOBIC [Suspect]
     Indication: PAIN
     Dosage: 1 PER 1 DAY
     Route: 048
     Dates: start: 20101029, end: 20110109
  13. MOBIC [Suspect]
     Indication: PAIN
     Dosage: 1 PER 1 DAY
     Route: 048
     Dates: start: 20110323, end: 20110904
  14. MOBIC [Suspect]
     Indication: PAIN
     Dosage: 1 PER 1 DAY
     Route: 048
     Dates: start: 20110112, end: 20110316
  15. FOSAMAC [Concomitant]
     Indication: OSTEOPOROSIS
     Dosage: 1 PER 1 WEEK
     Route: 048
     Dates: start: 2010, end: 2012
  16. LOXONIN [Concomitant]
     Indication: PAIN
     Dosage: 1 PER 1 DAY
     Route: 048
     Dates: start: 20110627, end: 20110722
  17. LOXONIN [Concomitant]
     Indication: PAIN
     Dosage: 1 PER 1 DAY
     Route: 048
     Dates: start: 200907, end: 20110729
  18. LOXONIN [Concomitant]
     Indication: PAIN
     Route: 048
     Dates: start: 20110829, end: 20110830
  19. LOXONIN [Concomitant]
     Indication: PAIN
     Dosage: 1 PER 1 DAY
     Route: 048
     Dates: start: 20110726, end: 20110729
  20. LOXONIN [Concomitant]
     Indication: PAIN
     Dosage: 1 PER 1 DAY
     Route: 048
     Dates: start: 20110723, end: 20110725
  21. LOXONIN [Concomitant]
     Indication: PAIN
     Dosage: 1-3 TABLETS DEPENDING ON THE DEGREE OF THE PAIN
     Route: 048
     Dates: start: 200911
  22. LOXONIN [Concomitant]
     Indication: OSTEOPOROSIS
     Dosage: 1 PER 1 DAY
     Route: 062
     Dates: start: 2010, end: 20110401
  23. LOXONIN [Concomitant]
     Indication: PAIN
     Dosage: 1 PER 1 DAY
     Route: 062
     Dates: start: 2010, end: 20110401
  24. MUCOSTA [Concomitant]
     Indication: PROPHYLAXIS AGAINST GASTROINTESTINAL ULCER
     Dosage: 1 PER 1 DAY
     Route: 048
     Dates: start: 20110627, end: 20110731
  25. EVISTA [Concomitant]
     Indication: OSTEOPOROSIS
     Route: 048
     Dates: start: 2010, end: 2012

REACTIONS (1)
  - Gastric ulcer [Recovered/Resolved]
